FAERS Safety Report 26105864 (Version 2)
Quarter: 2025Q4

REPORT INFORMATION
  Report Type: Report from Study
  Country: PA (occurrence: PA)
  Receive Date: 20251201
  Receipt Date: 20251231
  Transmission Date: 20260117
  Serious: Yes (Hospitalization, Disabling, Other)
  Sender: AMGEN
  Company Number: PA-SERVIER-S25017097

PATIENT
  Age: 68 Year
  Sex: Male
  Weight: 60 kg

DRUGS (2)
  1. IVABRADINE [Suspect]
     Active Substance: IVABRADINE
     Indication: Arrhythmia
     Dosage: 7.5 MG, QD
     Route: 048
     Dates: start: 2017
  2. PERINDOPRIL [Suspect]
     Active Substance: PERINDOPRIL
     Indication: Arrhythmia
     Dosage: 10 MG, QD, 1 TABLET IN THE MORNING AND 1 TABLET IN THE AFTERNOON
     Route: 048
     Dates: start: 2017

REACTIONS (2)
  - Gait disturbance [Recovering/Resolving]
  - Spinal operation [Recovering/Resolving]

NARRATIVE: CASE EVENT DATE: 20250301
